FAERS Safety Report 4596999-3 (Version None)
Quarter: 2005Q1

REPORT INFORMATION
  Report Type: 
  Country: None (occurrence: None)
  Receive Date: 20050228
  Receipt Date: 20050214
  Transmission Date: 20050727
  Serious: Yes (Hospitalization, Other)
  Sender: FDA-Public Use
  Company Number: 2005032149

PATIENT
  Age: 72 Year
  Sex: Male
  Weight: 72.5755 kg

DRUGS (7)
  1. NEURONTIN [Suspect]
     Indication: HERPES ZOSTER
     Dosage: 900 MG (300 MG, 3 IN 1 D)
     Dates: start: 20011101, end: 20020101
  2. OXYCODONE HYDROCHLORIDE (OXYCODONE HYDROCHLORIDE) [Concomitant]
  3. VICODIN [Concomitant]
  4. DILTIAZEM HYDROCHLORIDE [Concomitant]
  5. ESOMEPRAZOLE (ESOMEPRAZOLE) [Concomitant]
  6. ROSUVASTATIN (ROSUVASTATIN) [Concomitant]
  7. VITAMINS (VITAMINS) [Concomitant]

REACTIONS (6)
  - ASTHENIA [None]
  - FATIGUE [None]
  - GASTROOESOPHAGEAL REFLUX DISEASE [None]
  - PNEUMONIA [None]
  - RESPIRATORY DEPRESSION [None]
  - SOMNOLENCE [None]
